FAERS Safety Report 8810765 (Version 1)
Quarter: 2012Q4

REPORT INFORMATION
  Report Type: 
  Country: US (occurrence: US)
  Receive Date: 20120927
  Receipt Date: 20120927
  Transmission Date: 20130627
  Serious: No
  Sender: FDA-Public Use
  Company Number: US-PFIZER INC-2012236287

PATIENT
  Age: 48 Year
  Sex: Female
  Weight: 65 kg

DRUGS (4)
  1. SUTENT [Suspect]
     Indication: PRIMITIVE NEUROECTODERMAL TUMOUR
     Dosage: 37.5 mg, cyclic, took this dose daily for 28 days and then rested for 14 days
  2. SUTENT [Suspect]
     Indication: METASTASES TO LIVER
     Dosage: 12.5 mg, UNK
     Dates: start: 20120912
  3. DILAUDID [Concomitant]
     Indication: PAIN
  4. VITAMIN D [Concomitant]
     Dosage: UNK

REACTIONS (7)
  - Tongue disorder [Unknown]
  - Acne [Unknown]
  - Hyperkeratosis [Unknown]
  - Stomatitis [Unknown]
  - Oral pain [Recovered/Resolved]
  - Dysgeusia [Unknown]
  - Weight increased [Unknown]
